FAERS Safety Report 26056073 (Version 2)
Quarter: 2025Q4

REPORT INFORMATION
  Report Type: Spontaneous
  Country: JP (occurrence: JP)
  Receive Date: 20251118
  Receipt Date: 20251129
  Transmission Date: 20260117
  Serious: No
  Sender: CELLTRION
  Company Number: JP-JPNKAYAKU-2025JPNK052568

PATIENT

DRUGS (2)
  1. ADALIMUMAB [Suspect]
     Active Substance: ADALIMUMAB
     Indication: Rheumatoid arthritis
     Dosage: 40 MILLIGRAM, QD
     Route: 058
     Dates: start: 20251009
  2. ADALIMUMAB [Suspect]
     Active Substance: ADALIMUMAB

REACTIONS (3)
  - Erythema [Recovered/Resolved]
  - Tinnitus [Not Recovered/Not Resolved]
  - Intentional product use issue [Unknown]
